FAERS Safety Report 14840372 (Version 1)
Quarter: 2018Q2

REPORT INFORMATION
  Report Type: Spontaneous
  Country: MX (occurrence: MX)
  Receive Date: 20180503
  Receipt Date: 20180503
  Transmission Date: 20180711
  Serious: Yes (Hospitalization, Other)
  Sender: FDA-Public Use
  Company Number: MX-VISTAPHARM, INC.-VER201804-000618

PATIENT
  Age: 59 Year
  Sex: Male

DRUGS (7)
  1. IPRATROPIUM BROMIDE. [Concomitant]
     Active Substance: IPRATROPIUM BROMIDE
     Indication: ASTHMA
  2. IPRATROPIUM BROMIDE. [Concomitant]
     Active Substance: IPRATROPIUM BROMIDE
  3. PREDNISONE. [Concomitant]
     Active Substance: PREDNISONE
     Indication: ASTHMA
  4. ALBUTEROL. [Suspect]
     Active Substance: ALBUTEROL
     Indication: ASTHMA
  5. ALBUTEROL. [Suspect]
     Active Substance: ALBUTEROL
     Dosage: FIVE DOSES OF NEBULIZED ALBUTEROL THROUGH A MOUTHPIECE (TOTAL DOSE OF 32.5 MG)
  6. HYDROCORTISONE. [Concomitant]
     Active Substance: HYDROCORTISONE
     Indication: ASTHMA
  7. IPRATROPIUM BROMIDE. [Concomitant]
     Active Substance: IPRATROPIUM BROMIDE

REACTIONS (2)
  - Lactic acidosis [Recovering/Resolving]
  - Atrial fibrillation [Recovering/Resolving]
